FAERS Safety Report 6495584-6 (Version None)
Quarter: 2009Q4

REPORT INFORMATION
  Report Type: 
  Country: None (occurrence: None)
  Receive Date: 20091214
  Receipt Date: 20090812
  Transmission Date: 20100525
  Serious: No
  Sender: FDA-Public Use
  Company Number: US-BRISTOL-MYERS SQUIBB COMPANY-14706808

PATIENT
  Sex: Male

DRUGS (4)
  1. ABILIFY [Suspect]
     Indication: LETHARGY
  2. ABILIFY [Suspect]
     Indication: SOMNOLENCE
  3. ABILIFY [Suspect]
     Indication: FATIGUE
  4. CYMBALTA [Concomitant]

REACTIONS (5)
  - DRUG EFFECT DECREASED [None]
  - FATIGUE [None]
  - LETHARGY [None]
  - OEDEMA PERIPHERAL [None]
  - SOMNOLENCE [None]
